FAERS Safety Report 21001797 (Version 2)
Quarter: 2022Q3

REPORT INFORMATION
  Report Type: Spontaneous
  Country: MX (occurrence: None)
  Receive Date: 20220624
  Receipt Date: 20220706
  Transmission Date: 20221027
  Serious: Yes (Death)
  Sender: FDA-Public Use
  Company Number: MX-ROCHE-3123652

PATIENT
  Age: 82 Year
  Sex: Female
  Weight: 45.7 kg

DRUGS (14)
  1. PERTUZUMAB [Suspect]
     Active Substance: PERTUZUMAB
     Indication: Invasive ductal breast carcinoma
     Dosage: MAINTENANCE DOSE OF 420 MG
     Route: 041
     Dates: start: 20220422, end: 20220607
  2. PERTUZUMAB [Suspect]
     Active Substance: PERTUZUMAB
     Route: 042
     Dates: start: 20220422, end: 20220607
  3. TRASTUZUMAB [Suspect]
     Active Substance: TRASTUZUMAB
     Indication: Invasive ductal breast carcinoma
     Dosage: 365 MG
     Route: 041
     Dates: start: 20220422
  4. TRASTUZUMAB [Suspect]
     Active Substance: TRASTUZUMAB
     Dosage: MAINTENANCE DOSE 274 MG
     Route: 042
     Dates: start: 20220422
  5. TIOTROPIUM [Concomitant]
     Active Substance: TIOTROPIUM
     Indication: Chronic obstructive pulmonary disease
  6. ALBUTEROL [Concomitant]
     Active Substance: ALBUTEROL
     Indication: Chronic obstructive pulmonary disease
  7. ONDANSETRON [Concomitant]
     Active Substance: ONDANSETRON
     Indication: Premedication
     Dosage: SINGLE DOSE
     Route: 042
     Dates: start: 20220422
  8. ONDANSETRON [Concomitant]
     Active Substance: ONDANSETRON
     Dosage: FOR 3 DAYS
     Route: 048
     Dates: start: 20220422
  9. DEXAMETHASONE [Concomitant]
     Active Substance: DEXAMETHASONE
     Indication: Premedication
     Dosage: SINGLE DOSE
     Route: 042
     Dates: start: 20220422
  10. RANITIDINE [Concomitant]
     Active Substance: RANITIDINE
     Indication: Premedication
     Dosage: SINGLE DOSE
     Route: 042
     Dates: start: 20220422
  11. CHLOROPYRAMINE [Concomitant]
     Active Substance: CHLOROPYRAMINE
     Indication: Premedication
     Dosage: SINGLE DOSE
     Route: 042
     Dates: start: 20220422
  12. DOCETAXEL [Concomitant]
     Active Substance: DOCETAXEL
     Indication: Chemotherapy
     Route: 042
  13. CARBOPLATIN [Concomitant]
     Active Substance: CARBOPLATIN
     Indication: Chemotherapy
     Route: 042
  14. FILGRASTIM [Concomitant]
     Active Substance: FILGRASTIM
     Indication: Chemotherapy
     Dosage: FOR 3 DAYS
     Route: 058

REACTIONS (8)
  - Off label use [Unknown]
  - Off label use [Unknown]
  - Off label use [Unknown]
  - Fall [Fatal]
  - Femoral neck fracture [Fatal]
  - Acute respiratory failure [Fatal]
  - Off label use [Unknown]
  - Off label use [Unknown]

NARRATIVE: CASE EVENT DATE: 20220604
